FAERS Safety Report 4901862-1 (Version None)
Quarter: 2006Q1

REPORT INFORMATION
  Report Type: 
  Country: None (occurrence: None)
  Receive Date: 20060206
  Receipt Date: 20041123
  Transmission Date: 20060701
  Serious: Yes (Life-Threatening, Hospitalization)
  Sender: FDA-Public Use
  Company Number: TW-ABBOTT-04P-153-0281345-00

PATIENT
  Age: 32 Year
  Sex: Female

DRUGS (9)
  1. DEPAKENE [Suspect]
     Indication: BIPOLAR DISORDER
     Route: 048
     Dates: start: 20030101
  2. DEPAKENE [Suspect]
     Route: 048
     Dates: start: 20041001, end: 20041030
  3. LAMOTRIGINE [Interacting]
     Indication: GENERAL SYMPTOM
     Route: 048
     Dates: start: 20041015
  4. LAMOTRIGINE [Interacting]
     Route: 048
     Dates: start: 20041001
  5. SENNA FRUIT [Concomitant]
     Indication: DRUG USE FOR UNKNOWN INDICATION
  6. BISACODYL [Concomitant]
     Indication: DRUG USE FOR UNKNOWN INDICATION
  7. FENOTEROL HYDROBROMIDE [Concomitant]
     Indication: DRUG USE FOR UNKNOWN INDICATION
  8. BUPROPION HYDROCHLORIDE [Concomitant]
     Indication: DRUG USE FOR UNKNOWN INDICATION
  9. RIBOFLAVIN TAB [Concomitant]
     Indication: DRUG USE FOR UNKNOWN INDICATION

REACTIONS (11)
  - ANAEMIA [None]
  - DRUG INTERACTION [None]
  - DRUG LEVEL ABOVE THERAPEUTIC [None]
  - ELECTROLYTE IMBALANCE [None]
  - HEPATIC FUNCTION ABNORMAL [None]
  - HYPERSENSITIVITY [None]
  - HYPOALBUMINAEMIA [None]
  - PULMONARY OEDEMA [None]
  - STEVENS-JOHNSON SYNDROME [None]
  - THROMBOCYTOPENIA [None]
  - TOXIC EPIDERMAL NECROLYSIS [None]
